FAERS Safety Report 23693332 (Version 4)
Quarter: 2024Q2

REPORT INFORMATION
  Report Type: Spontaneous
  Country: US (occurrence: US)
  Receive Date: 20240401
  Receipt Date: 20240423
  Transmission Date: 20240716
  Serious: No
  Sender: FDA-Public Use
  Company Number: US-PFIZER INC-202400072633

PATIENT
  Age: 88 Year
  Sex: Female
  Weight: 57.596 kg

DRUGS (5)
  1. PROCARDIA XL [Suspect]
     Active Substance: NIFEDIPINE
     Indication: Blood pressure abnormal
     Dosage: 30 MILLIGRAMS, TABLET, ONCE AT NIGHT
     Route: 048
     Dates: start: 1997
  2. PROCARDIA XL [Suspect]
     Active Substance: NIFEDIPINE
     Indication: Raynaud^s phenomenon
  3. PROCARDIA XL [Suspect]
     Active Substance: NIFEDIPINE
     Indication: Hypertension
  4. HYDROCHLOROTHIAZIDE [Concomitant]
     Active Substance: HYDROCHLOROTHIAZIDE
     Indication: Hypertension
     Dosage: TAKE THAT IN THE MORNING
  5. HYDROCHLOROTHIAZIDE [Concomitant]
     Active Substance: HYDROCHLOROTHIAZIDE
     Indication: Joint swelling

REACTIONS (1)
  - Hypersensitivity [Unknown]
